FAERS Safety Report 11087574 (Version 1)
Quarter: 2015Q2

REPORT INFORMATION
  Report Type: Spontaneous
  Country: US (occurrence: None)
  Receive Date: 20150501
  Receipt Date: 20150501
  Transmission Date: 20150821
  Serious: Yes (Other)
  Sender: FDA-Public Use
  Company Number: None

PATIENT
  Age: 45 Year
  Sex: Female

DRUGS (2)
  1. HEAD AND SHOULDERS CONDITIONER SMOOTH AND SILKY [Suspect]
     Active Substance: PYRITHIONE ZINC
     Dosage: 1 APPLICATION ?1 ONLY ?TOPICAL
     Route: 061
     Dates: start: 20150420, end: 20150420
  2. HEAD AND SHOULDERS SMOOTH AND SILKY [Suspect]
     Active Substance: PYRITHIONE ZINC
     Dosage: 1 APPLICATION ?1 ONLY ?TOPICAL
     Route: 061
     Dates: start: 20150420, end: 20150420

REACTIONS (3)
  - Burning sensation [None]
  - Anaphylactic reaction [None]
  - Injection site pain [None]

NARRATIVE: CASE EVENT DATE: 20150420
